FAERS Safety Report 10098731 (Version 1)
Quarter: 2014Q2

REPORT INFORMATION
  Report Type: Spontaneous
  Country: CN (occurrence: CN)
  Receive Date: 20140423
  Receipt Date: 20140423
  Transmission Date: 20141212
  Serious: Yes (Other)
  Sender: FDA-Public Use
  Company Number: CN-BAXTER-2014BAX019094

PATIENT
  Age: 78 Year
  Sex: Male
  Weight: 80 kg

DRUGS (3)
  1. 0.9% SODIUM CHLORIDE INJECTION [Suspect]
     Indication: MEDICATION DILUTION
     Route: 041
     Dates: start: 20130326, end: 20130326
  2. CEFTAZIDIME [Suspect]
     Indication: ANTI-INFECTIVE THERAPY
     Route: 041
     Dates: start: 20130326, end: 20130326
  3. CEFTAZIDIME [Suspect]
     Route: 065
     Dates: start: 20130306

REACTIONS (2)
  - Erythema [Recovering/Resolving]
  - Rash erythematous [Recovering/Resolving]
